FAERS Safety Report 23164397 (Version 1)
Quarter: 2023Q4

REPORT INFORMATION
  Report Type: Spontaneous
  Country: GB (occurrence: None)
  Receive Date: 20231108
  Receipt Date: 20231108
  Transmission Date: 20240110
  Serious: Yes (unspecified)
  Sender: FDA-Public Use
  Company Number: None

PATIENT
  Age: 39 Year
  Sex: Female

DRUGS (1)
  1. PREDNISONE [Suspect]
     Active Substance: PREDNISONE
     Indication: Polymyositis
     Dates: start: 20200101, end: 20220401

REACTIONS (4)
  - Insomnia [None]
  - Weight increased [None]
  - Increased appetite [None]
  - Mood altered [None]

NARRATIVE: CASE EVENT DATE: 20200101
